FAERS Safety Report 13651174 (Version 2)
Quarter: 2019Q1

REPORT INFORMATION
  Report Type: Spontaneous
  Country: US (occurrence: US)
  Receive Date: 20170614
  Receipt Date: 20190305
  Transmission Date: 20190417
  Serious: No
  Sender: FDA-Public Use
  Company Number: US-GLAXOSMITHKLINE-US2017089327

PATIENT
  Age: 90 Year
  Sex: Female

DRUGS (2)
  1. VOLTAREN [Suspect]
     Active Substance: DICLOFENAC SODIUM
     Indication: ARTHRITIS
     Dosage: UNK UNK, TID
  2. VOLTAREN [Suspect]
     Active Substance: DICLOFENAC SODIUM
     Indication: PAIN

REACTIONS (4)
  - Expired product administered [Unknown]
  - Product complaint [Unknown]
  - Product use in unapproved indication [Unknown]
  - Inappropriate schedule of product administration [Unknown]
